FAERS Safety Report 7658637-2 (Version None)
Quarter: 2011Q3

REPORT INFORMATION
  Report Type: 
  Country: None (occurrence: None)
  Receive Date: 20110805
  Receipt Date: 20110729
  Transmission Date: 20111222
  Serious: Yes (Hospitalization, Other)
  Sender: FDA-Public Use
  Company Number: US-BAYER-201025811NA

PATIENT
  Age: 41 Year
  Sex: Female
  Weight: 65.76 kg

DRUGS (12)
  1. CIPROFLAXACIN [Concomitant]
  2. BACTRIM DS [Concomitant]
  3. MORPHINE [Concomitant]
  4. ALVESCO [Concomitant]
     Dosage: UNK UNK, BID
     Route: 055
  5. YAZ [Suspect]
     Indication: CONTRACEPTION
     Dosage: UNK
     Route: 048
     Dates: start: 20070517, end: 20090801
  6. PERCOCET [Concomitant]
     Dosage: 5 MG, PRN
  7. AMOXICILLIN [Concomitant]
  8. VICODIN [Concomitant]
  9. XOPENEX [Concomitant]
     Indication: ASTHMA
     Dosage: UNK
     Route: 055
     Dates: start: 20080101
  10. SINGULAIR [Concomitant]
     Dosage: UNK UNK, QD
  11. DROSPIRENONE AND ETHINYL ESTRADIOL [Suspect]
     Indication: CONTRACEPTION
     Dosage: UNK
     Route: 048
     Dates: start: 20070517, end: 20090801
  12. PREVPAC [Concomitant]

REACTIONS (4)
  - PAIN [None]
  - CHOLECYSTECTOMY [None]
  - CHOLECYSTITIS CHRONIC [None]
  - CHOLELITHIASIS [None]
